FAERS Safety Report 6086089-5 (Version None)
Quarter: 2009Q1

REPORT INFORMATION
  Report Type: 
  Country: None (occurrence: None)
  Receive Date: 20090217
  Receipt Date: 20081211
  Transmission Date: 20090719
  Serious: Yes (Other)
  Sender: FDA-Public Use
  Company Number: MC200800579

PATIENT
  Sex: Male

DRUGS (5)
  1. ANGIOMAX [Suspect]
     Indication: PERCUTANEOUS CORONARY INTERVENTION
     Dosage: 0.75 UG/KG, BOLUS, 1.75 MG/KG/HR, 0.2 MG/KG/HR
     Route: 040
     Dates: start: 20081205, end: 20081205
  2. ANGIOMAX [Suspect]
     Indication: PERCUTANEOUS CORONARY INTERVENTION
     Dosage: 0.75 UG/KG, BOLUS, 1.75 MG/KG/HR, 0.2 MG/KG/HR
     Route: 040
     Dates: start: 20081205, end: 20081205
  3. ANGIOMAX [Suspect]
     Indication: PERCUTANEOUS CORONARY INTERVENTION
     Dosage: 0.75 UG/KG, BOLUS, 1.75 MG/KG/HR, 0.2 MG/KG/HR
     Route: 040
     Dates: start: 20081205, end: 20081205
  4. ANGIOMAX [Suspect]
     Indication: PERCUTANEOUS CORONARY INTERVENTION
     Dosage: 0.75 UG/KG, BOLUS, 1.75 MG/KG/HR, 0.2 MG/KG/HR
     Route: 040
     Dates: start: 20081209, end: 20081211
  5. PLAVIX [Concomitant]

REACTIONS (2)
  - GASTROINTESTINAL HAEMORRHAGE [None]
  - THROMBOSIS [None]
